FAERS Safety Report 13023285 (Version 1)
Quarter: 2016Q4

REPORT INFORMATION
  Report Type: Spontaneous
  Country: US (occurrence: US)
  Receive Date: 20161213
  Receipt Date: 20161213
  Transmission Date: 20170207
  Serious: No
  Sender: FDA-Public Use
  Company Number: US-R-PHARM US LLC-2016RPM00018

PATIENT
  Sex: Male

DRUGS (4)
  1. CAPECITABINE. [Concomitant]
     Active Substance: CAPECITABINE
  2. CODEINE [Concomitant]
     Active Substance: CODEINE
  3. IXEMPRA [Suspect]
     Active Substance: IXABEPILONE
     Dosage: UNKNOWN
  4. PENICILLIN [Concomitant]
     Active Substance: PENICILLIN

REACTIONS (1)
  - Drug hypersensitivity [Unknown]
